FAERS Safety Report 7557903-9 (Version None)
Quarter: 2011Q2

REPORT INFORMATION
  Report Type: 
  Country: None (occurrence: None)
  Receive Date: 20110620
  Receipt Date: 20110601
  Transmission Date: 20111010
  Serious: Yes (Other)
  Sender: FDA-Public Use
  Company Number: A0911677A

PATIENT
  Age: 66 Year
  Sex: Male

DRUGS (5)
  1. ADVICOR [Concomitant]
  2. TOPROL-XL [Concomitant]
  3. NORVASC [Concomitant]
     Dates: end: 20090401
  4. AVANDIA [Suspect]
     Indication: DIABETES MELLITUS
     Route: 048
     Dates: start: 20040101, end: 20090201
  5. AVANDAMET [Suspect]
     Route: 048
     Dates: start: 20070406, end: 20090401

REACTIONS (4)
  - CORONARY ARTERY DISEASE [None]
  - CHEST PAIN [None]
  - ATRIAL FLUTTER [None]
  - ATRIAL FIBRILLATION [None]
